FAERS Safety Report 4316285-6 (Version None)
Quarter: 2004Q1

REPORT INFORMATION
  Report Type: 
  Country: None (occurrence: None)
  Receive Date: 20040310
  Receipt Date: 20040105
  Transmission Date: 20041129
  Serious: Yes (Other)
  Sender: FDA-Public Use
  Company Number: HQWYE122606JAN04

PATIENT
  Sex: Female
  Weight: 66.74 kg

DRUGS (5)
  1. PROTONIX [Suspect]
     Indication: OESOPHAGITIS
     Dosage: 40 MG 1 X PER 1 DAY, ORAL
     Route: 048
     Dates: start: 20030101
  2. LIPITOR [Concomitant]
  3. ZETIA [Concomitant]
  4. PLAVIX [Concomitant]
  5. VITAMINS NOS (VITAMINS NOS) [Concomitant]

REACTIONS (1)
  - SENSATION OF FOREIGN BODY [None]
